FAERS Safety Report 16677672 (Version 8)
Quarter: 2022Q1

REPORT INFORMATION
  Report Type: Report from Study
  Country: FR (occurrence: FR)
  Receive Date: 20190807
  Receipt Date: 20220130
  Transmission Date: 20220424
  Serious: Yes (Death, Other)
  Sender: FDA-Public Use
  Company Number: FR-JAZZ-2019-FR-010819

PATIENT

DRUGS (5)
  1. DEFITELIO [Suspect]
     Active Substance: DEFIBROTIDE SODIUM
     Indication: Venoocclusive liver disease
     Dosage: 25.8 MG/KG
     Route: 042
     Dates: start: 20180825, end: 20180831
  2. PENICILLIN V [Suspect]
     Active Substance: PENICILLIN V
     Indication: Antibiotic prophylaxis
     Dosage: 6 UNK
     Route: 048
     Dates: end: 20190309
  3. ALLOPURINOL [Suspect]
     Active Substance: ALLOPURINOL
     Indication: Prophylaxis
     Dosage: 300 MG
     Route: 048
     Dates: end: 20190309
  4. HYDREA [Suspect]
     Active Substance: HYDROXYUREA
     Indication: Chemotherapy
     Dosage: UNK
     Route: 048
     Dates: end: 20190309
  5. POTASSIUM CHLORIDE [Suspect]
     Active Substance: POTASSIUM CHLORIDE
     Indication: Hypokalaemia
     Dosage: 3600
     Route: 048
     Dates: end: 20190309

REACTIONS (4)
  - Disease progression [Fatal]
  - Seizure [Recovered/Resolved]
  - Subdural haematoma [Recovered/Resolved]
  - Off label use [Unknown]

NARRATIVE: CASE EVENT DATE: 20180825
